FAERS Safety Report 8168108-5 (Version None)
Quarter: 2012Q1

REPORT INFORMATION
  Report Type: 
  Country: None (occurrence: None)
  Receive Date: 20120227
  Receipt Date: 20120220
  Transmission Date: 20120608
  Serious: Yes (Other)
  Sender: FDA-Public Use
  Company Number: PHHO2011US05149

PATIENT
  Sex: Female
  Weight: 60.6 kg

DRUGS (12)
  1. BLINDED NO TREATMENT RECEIVED [Suspect]
     Indication: DEMENTIA ALZHEIMER'S TYPE
     Dosage: 5 CM2
     Route: 062
     Dates: start: 20110308, end: 20110311
  2. LOSARTAN POTASSIUM AND HYDROCHLOROTHIAZIDE [Concomitant]
     Indication: HYPERTENSION
  3. EXELON [Suspect]
     Indication: DEMENTIA ALZHEIMER'S TYPE
     Dosage: 5 CM2
     Route: 062
     Dates: start: 20110308, end: 20110311
  4. EXELON [Suspect]
     Indication: DEMENTIA ALZHEIMER'S TYPE
     Dosage: 5CM2
     Route: 062
     Dates: start: 20110308, end: 20110311
  5. BLINDED NO TREATMENT RECEIVED [Suspect]
     Dosage: 5 CM2
     Route: 062
     Dates: start: 20110314, end: 20110903
  6. AZATHIOPRINE [Concomitant]
     Indication: MYASTHENIA GRAVIS
  7. EXELON [Suspect]
     Dosage: 5 CM2
     Route: 062
     Dates: start: 20110314, end: 20110903
  8. EXELON [Suspect]
     Dosage: 5CM2
     Route: 062
     Dates: start: 20110314, end: 20110903
  9. PRISTIQ [Concomitant]
     Indication: DEPRESSION
  10. SIMVASTATIN [Concomitant]
     Indication: HYPERCHOLESTEROLAEMIA
  11. LEVOTHYROXINE SODIUM [Concomitant]
     Indication: HYPOTHYROIDISM
  12. FOSAMAX [Concomitant]
     Indication: OSTEOPOROSIS

REACTIONS (1)
  - WRONG TECHNIQUE IN DRUG USAGE PROCESS [None]
